FAERS Safety Report 7047748-0 (Version None)
Quarter: 2010Q4

REPORT INFORMATION
  Report Type: 
  Country: None (occurrence: None)
  Receive Date: 20101015
  Receipt Date: 20101008
  Transmission Date: 20110411
  Serious: Yes (Death, Life-Threatening, Hospitalization)
  Sender: FDA-Public Use
  Company Number: JP-PFIZER INC-2010125079

PATIENT
  Age: 84 Year
  Sex: Male

DRUGS (6)
  1. PRODIF [Suspect]
     Indication: SYSTEMIC MYCOSIS
     Dosage: 252.3 MG/DAY
     Route: 042
     Dates: start: 20100918, end: 20100930
  2. ZYVOX [Suspect]
     Indication: PNEUMONIA STAPHYLOCOCCAL
     Dosage: 1200 MG/DAY
     Route: 041
     Dates: start: 20100918, end: 20100930
  3. LASIX [Concomitant]
     Dosage: UNK
  4. SOLDACTONE [Concomitant]
     Dosage: UNK
  5. INTRALIPID 10% [Concomitant]
     Dosage: UNK
  6. PLEVITA S [Concomitant]
     Dosage: UNK

REACTIONS (1)
  - BONE MARROW FAILURE [None]
